FAERS Safety Report 20469858 (Version 2)
Quarter: 2022Q1

REPORT INFORMATION
  Report Type: Spontaneous
  Country: US (occurrence: US)
  Receive Date: 20220214
  Receipt Date: 20220310
  Transmission Date: 20220424
  Serious: Yes (Hospitalization, Other)
  Sender: FDA-Public Use
  Company Number: US-PFIZER INC-202200018904

PATIENT
  Age: 76 Year
  Sex: Male
  Weight: 90.703 kg

DRUGS (1)
  1. VORICONAZOLE [Suspect]
     Active Substance: VORICONAZOLE
     Indication: Fungal infection
     Dosage: 200 MG, 1X/DAY
     Dates: start: 20200921, end: 202106

REACTIONS (3)
  - Tooth restoration [Not Recovered/Not Resolved]
  - Tooth extraction [Unknown]
  - Limb discomfort [Recovering/Resolving]
